FAERS Safety Report 18943588 (Version 1)
Quarter: 2021Q1

REPORT INFORMATION
  Report Type: Spontaneous
  Country: US (occurrence: US)
  Receive Date: 20210225
  Receipt Date: 20210225
  Transmission Date: 20210420
  Serious: Yes (Hospitalization)
  Sender: FDA-Public Use
  Company Number: None

PATIENT
  Age: 58 Year
  Sex: Male
  Weight: 85.4 kg

DRUGS (7)
  1. LEVETIRACETAM. [Suspect]
     Active Substance: LEVETIRACETAM
     Indication: EPILEPSY
     Route: 048
     Dates: start: 20030101, end: 20210203
  2. DIVALPROEX ER [Suspect]
     Active Substance: DIVALPROEX SODIUM
     Indication: EPILEPSY
     Route: 048
     Dates: start: 20030101, end: 20210203
  3. MODERNA COVID?19 VACCINE [Suspect]
     Active Substance: CX-024414
     Dates: start: 20210221, end: 20210221
  4. FUROSEMIDE. [Concomitant]
     Active Substance: FUROSEMIDE
  5. DIAZEPAM. [Concomitant]
     Active Substance: DIAZEPAM
  6. ATORVASTATIN [Concomitant]
     Active Substance: ATORVASTATIN
  7. LEVOTHYROXINE. [Concomitant]
     Active Substance: LEVOTHYROXINE

REACTIONS (3)
  - Infection [None]
  - Drug eruption [None]
  - Rash [None]

NARRATIVE: CASE EVENT DATE: 20210131
